FAERS Safety Report 4642313-4 (Version None)
Quarter: 2005Q2

REPORT INFORMATION
  Report Type: 
  Country: None (occurrence: None)
  Receive Date: 20050420
  Receipt Date: 20050407
  Transmission Date: 20051028
  Serious: Yes (Hospitalization)
  Sender: FDA-Public Use
  Company Number: 2005CG00713

PATIENT
  Age: 69 Year
  Sex: Male
  Weight: 69 kg

DRUGS (4)
  1. CASODEX [Suspect]
     Indication: PROSTATE CANCER
     Dosage: 50 MG QD PO
     Route: 048
     Dates: end: 20050321
  2. MOTILIUM [Concomitant]
  3. FRACTAL [Concomitant]
  4. LANZOR [Concomitant]

REACTIONS (9)
  - ANOREXIA [None]
  - ASPHYXIA [None]
  - EOSINOPHILIA [None]
  - ILL-DEFINED DISORDER [None]
  - LUNG CONSOLIDATION [None]
  - LUNG DISORDER [None]
  - NECK PAIN [None]
  - PLEURAL EFFUSION [None]
  - PRODUCTIVE COUGH [None]
